FAERS Safety Report 15155915 (Version 1)
Quarter: 2018Q3

REPORT INFORMATION
  Report Type: Spontaneous
  Country: DE (occurrence: DE)
  Receive Date: 20180717
  Receipt Date: 20180717
  Transmission Date: 20181010
  Serious: Yes (Other)
  Sender: FDA-Public Use
  Company Number: DE-US WORLDMEDS, LLC-STA_00019717

PATIENT
  Sex: Female

DRUGS (3)
  1. APOMORPHINE HYDROCHLORIDE [Suspect]
     Active Substance: APOMORPHINE HYDROCHLORIDE
     Indication: ON AND OFF PHENOMENON
     Dosage: 6 MG/H
     Route: 058
  2. LEVODOPA [Concomitant]
     Active Substance: LEVODOPA
     Indication: ON AND OFF PHENOMENON
     Dosage: 700MG
     Route: 048
  3. PRAMIPEXOLE. [Concomitant]
     Active Substance: PRAMIPEXOLE
     Indication: ON AND OFF PHENOMENON
     Dosage: 1.4MG
     Route: 048

REACTIONS (2)
  - Skin necrosis [Recovered/Resolved]
  - Subcutaneous abscess [Recovered/Resolved]
